FAERS Safety Report 24972479 (Version 5)
Quarter: 2025Q3

REPORT INFORMATION
  Report Type: Spontaneous
  Country: CA (occurrence: CA)
  Receive Date: 20250215
  Receipt Date: 20250712
  Transmission Date: 20251021
  Serious: Yes (Other)
  Sender: CELLTRION
  Company Number: CA-CELLTRION INC.-2025CA000559

PATIENT

DRUGS (11)
  1. INFLIXIMAB [Suspect]
     Active Substance: INFLIXIMAB
     Indication: Colitis ulcerative
     Dates: start: 202407
  2. INFLIXIMAB [Suspect]
     Active Substance: INFLIXIMAB
     Route: 058
  3. INFLIXIMAB [Suspect]
     Active Substance: INFLIXIMAB
     Dosage: 120 MG, EVERY 2 WEEKS
     Route: 058
     Dates: start: 20241010
  4. INFLIXIMAB [Suspect]
     Active Substance: INFLIXIMAB
     Dosage: 240 MG SC EVERY OTHER WEEK / STOP DATE 2025
     Route: 058
  5. INFLIXIMAB [Suspect]
     Active Substance: INFLIXIMAB
     Dosage: 240 MG EVERY 2 WEEKS
     Route: 058
     Dates: start: 20241010
  6. INFLIXIMAB [Suspect]
     Active Substance: INFLIXIMAB
     Dosage: REMSIMA SC 240 MG EVERY 2 WEEKS
     Route: 058
     Dates: start: 20250610, end: 2025
  7. INFLIXIMAB [Suspect]
     Active Substance: INFLIXIMAB
     Route: 058
  8. PREDNISONE [Concomitant]
     Active Substance: PREDNISONE
     Indication: Product used for unknown indication
     Route: 065
  9. PREDNISONE [Concomitant]
     Active Substance: PREDNISONE
  10. PREDNISONE [Concomitant]
     Active Substance: PREDNISONE
     Indication: Product used for unknown indication
     Route: 065
  11. TACROLIMUS [Concomitant]
     Active Substance: TACROLIMUS
     Indication: Product used for unknown indication
     Route: 065

REACTIONS (8)
  - Colitis [Unknown]
  - Symptom recurrence [Unknown]
  - Product dose omission issue [Unknown]
  - Product supply issue [Unknown]
  - Treatment failure [Unknown]
  - Therapy change [Unknown]
  - Drug ineffective [Unknown]
  - Off label use [Unknown]

NARRATIVE: CASE EVENT DATE: 20250101
